FAERS Safety Report 9609290 (Version 2)
Quarter: 2014Q1

REPORT INFORMATION
  Report Type: Report from Study
  Country: US (occurrence: US)
  Receive Date: 20131009
  Receipt Date: 20140204
  Transmission Date: 20141002
  Serious: Yes (Other)
  Sender: FDA-Public Use
  Company Number: US-ABBVIE-13P-163-1153784-00

PATIENT
  Age: 38 Year
  Sex: Female
  Weight: 86.26 kg

DRUGS (33)
  1. HUMIRA [Suspect]
     Indication: CROHN^S DISEASE
     Dates: start: 2009
  2. HUMIRA [Suspect]
     Indication: PSORIATIC ARTHROPATHY
  3. HUMIRA [Suspect]
     Dates: start: 20120816
  4. PRILOSEC [Concomitant]
     Indication: PRODUCT USED FOR UNKNOWN INDICATION
     Route: 048
  5. CARAFATE [Concomitant]
     Indication: GASTRIC DISORDER
     Route: 048
  6. ADDERALL [Concomitant]
     Indication: NARCOLEPSY
  7. ADDERALL [Concomitant]
  8. MOMETASONE [Concomitant]
     Indication: PSORIASIS
     Route: 061
  9. INTERMEZZO [Concomitant]
     Indication: INSOMNIA
  10. PHENERGAN [Concomitant]
     Indication: CROHN^S DISEASE
  11. FENTANYL [Concomitant]
     Indication: PRODUCT USED FOR UNKNOWN INDICATION
     Dosage: 100 MCG/HOUR PATCH
     Route: 062
     Dates: start: 20130722
  12. FENTANYL [Concomitant]
  13. LISINOPRIL [Concomitant]
     Indication: PRODUCT USED FOR UNKNOWN INDICATION
  14. LISINOPRIL [Concomitant]
     Route: 048
     Dates: start: 20130722
  15. CYMBALTA [Concomitant]
     Indication: PRODUCT USED FOR UNKNOWN INDICATION
  16. ALLEGRA-D 12 HOUR [Concomitant]
     Indication: PRODUCT USED FOR UNKNOWN INDICATION
     Dosage: 60 - 120 MG TB12- 1 TAB EVERY 12 HOURS AS NEEDED
  17. ALUMINUM CHLORIDE 20% EXTERNAL SOLUTION (DYSOL) [Concomitant]
     Indication: SWEAT GLAND DISORDER
     Dosage: APPLY TO AFFECGTED AREA AS NEEDED
     Dates: start: 20130722
  18. AMBIEN [Concomitant]
     Indication: PRODUCT USED FOR UNKNOWN INDICATION
     Dosage: AT BEDTIME
  19. ATIVAN [Concomitant]
     Indication: PRODUCT USED FOR UNKNOWN INDICATION
     Route: 048
  20. CEVIMELINE HCL [Concomitant]
     Indication: PRODUCT USED FOR UNKNOWN INDICATION
     Route: 048
     Dates: start: 20120816
  21. DICLOFENAC SODIUM [Concomitant]
     Indication: PRODUCT USED FOR UNKNOWN INDICATION
     Dosage: DELAYED RELEASE
     Route: 048
     Dates: start: 20130603
  22. DRYSOL 20% EXTERNAL SOLUTION [Concomitant]
     Indication: PRODUCT USED FOR UNKNOWN INDICATION
     Dates: start: 20121012
  23. FIORICET [Concomitant]
     Indication: PAIN
     Dosage: 50-325-40 MG TAKE 1 TO 2 TABLETS EVERY 6 HOURS PRN
     Route: 048
  24. FLUCONAZOLE [Concomitant]
     Indication: PRODUCT USED FOR UNKNOWN INDICATION
     Route: 048
     Dates: start: 20130426
  25. LUNESTA [Concomitant]
     Indication: PRODUCT USED FOR UNKNOWN INDICATION
     Dosage: AT BEDTIME
     Route: 048
  26. MORPHINE SULFATE [Concomitant]
     Indication: PAIN
     Dosage: TAKE 1-*2 TABLET EVERY 6 HOURS PRN
     Route: 048
  27. MUPIROCIN 2% EXTERNAL OINTMENT [Concomitant]
     Indication: PRODUCT USED FOR UNKNOWN INDICATION
     Dosage: APPLY A SMALL AMOUNT 3 TIMES DAILY AS DIRECTED
     Dates: start: 20130426
  28. NEURONTIN [Concomitant]
     Indication: PRODUCT USED FOR UNKNOWN INDICATION
     Route: 048
  29. OMEGA-3 [Concomitant]
     Indication: PRODUCT USED FOR UNKNOWN INDICATION
  30. PROAIR HFA [Concomitant]
     Indication: PRODUCT USED FOR UNKNOWN INDICATION
     Dosage: 108 (90 BASE) MCG/ACT INHALATION AERSOL SOLUTION
     Route: 055
  31. SAVELLA [Concomitant]
     Indication: PRODUCT USED FOR UNKNOWN INDICATION
     Route: 048
  32. TIZANIDINE HCL [Concomitant]
     Indication: MUSCLE SPASMS
     Dosage: TAKE 1 TABLET EVERY 6 HOURS AS NEEDED
     Route: 048
  33. XOPENEX HFA [Concomitant]
     Indication: PRODUCT USED FOR UNKNOWN INDICATION
     Dosage: 45 MCG/ACT INHALATION AERSOL-INHALE 2 PUFFS FOUR TIMES DAILY AS DIRECTED
     Route: 055

REACTIONS (28)
  - Lumbar spinal stenosis [Unknown]
  - Joint dislocation [Unknown]
  - Drug ineffective [Recovering/Resolving]
  - Psoriasis [Recovering/Resolving]
  - Pain [Unknown]
  - Hypertension [Unknown]
  - Pain [Unknown]
  - Dry mouth [Unknown]
  - Psoriasis [Unknown]
  - Immunodeficiency [Unknown]
  - Wound infection staphylococcal [Unknown]
  - Feeling abnormal [Unknown]
  - Accident at work [Unknown]
  - Thoracic vertebral fracture [Unknown]
  - Joint injury [Unknown]
  - Arthritis [Unknown]
  - Hand deformity [Unknown]
  - Foot deformity [Unknown]
  - Headache [Unknown]
  - Wound infection staphylococcal [Unknown]
  - Fatigue [Unknown]
  - Depression [Unknown]
  - Insomnia [Unknown]
  - Intervertebral disc degeneration [Unknown]
  - Lymphadenopathy [Unknown]
  - Vitamin B12 deficiency [Unknown]
  - Vitamin D deficiency [Unknown]
  - Disability [Unknown]
